FAERS Safety Report 18028289 (Version 7)
Quarter: 2021Q3

REPORT INFORMATION
  Report Type: Report from Study
  Country: AR (occurrence: AR)
  Receive Date: 20200716
  Receipt Date: 20210928
  Transmission Date: 20211014
  Serious: Yes (Hospitalization, Other)
  Sender: FDA-Public Use
  Company Number: AR-TAKEDA-2020TUS027424

PATIENT
  Age: 26 Year
  Sex: Female

DRUGS (5)
  1. PONATINIB [Suspect]
     Active Substance: PONATINIB
     Dosage: 45 MILLIGRAM, QD
     Route: 048
     Dates: start: 20200604, end: 202009
  2. PONATINIB [Suspect]
     Active Substance: PONATINIB
     Dosage: 45 MILLIGRAM, QD
     Route: 048
     Dates: start: 20210525, end: 202106
  3. PONATINIB [Suspect]
     Active Substance: PONATINIB
     Indication: CHRONIC MYELOID LEUKAEMIA
     Dosage: 45 MILLIGRAM, QD
     Route: 048
     Dates: start: 20191101, end: 202002
  4. PONATINIB [Suspect]
     Active Substance: PONATINIB
     Dosage: 45 MILLIGRAM, QD
     Route: 048
     Dates: start: 202104, end: 2021
  5. PONATINIB [Suspect]
     Active Substance: PONATINIB
     Dosage: 45 MILLIGRAM, QD
     Route: 048
     Dates: start: 20201024, end: 202101

REACTIONS (16)
  - COVID-19 [Recovered/Resolved]
  - Breast pain [Recovered/Resolved]
  - Psychotic disorder [Unknown]
  - Blood prolactin increased [Unknown]
  - Fatigue [Unknown]
  - Abdominal pain lower [Unknown]
  - Illness [Unknown]
  - Musculoskeletal discomfort [Unknown]
  - Vomiting [Unknown]
  - Headache [Unknown]
  - Pain in extremity [Unknown]
  - Insomnia [Unknown]
  - Back pain [Unknown]
  - Pyrexia [Recovered/Resolved]
  - Menstrual disorder [Unknown]
  - Aggression [Unknown]

NARRATIVE: CASE EVENT DATE: 2020
